FAERS Safety Report 5568576-9 (Version None)
Quarter: 2007Q4

REPORT INFORMATION
  Report Type: 
  Country: None (occurrence: None)
  Receive Date: 20071220
  Receipt Date: 20071211
  Transmission Date: 20080405
  Serious: Yes (Other)
  Sender: FDA-Public Use
  Company Number: US-ROCHE-530244

PATIENT
  Age: 91 Year
  Sex: Female

DRUGS (3)
  1. BONIVA [Suspect]
     Indication: OSTEOPOROSIS
     Dosage: DID NOT TAKE DRUG WITH ANY REGULARITY.
     Route: 048
     Dates: start: 20060801
  2. TYLENOL [Concomitant]
  3. METOPROLOL SUCCINATE [Concomitant]

REACTIONS (1)
  - ANGIOEDEMA [None]
